FAERS Safety Report 4320285-X (Version None)
Quarter: 2004Q1

REPORT INFORMATION
  Report Type: 
  Country: None (occurrence: None)
  Receive Date: 20040317
  Receipt Date: 20040304
  Transmission Date: 20041129
  Serious: Yes (Hospitalization)
  Sender: FDA-Public Use
  Company Number: A211572

PATIENT
  Age: 68 Year
  Sex: Male

DRUGS (5)
  1. DOXAZOSIN (DOXAZOSIN) [Suspect]
     Indication: BENIGN PROSTATIC HYPERPLASIA
     Dosage: 4 MG (DAILY), ORAL
     Route: 048
     Dates: start: 20011101, end: 20030301
  2. ISOSORBIDE MONONITRATE [Concomitant]
  3. ENALAPRIL MALEATE [Concomitant]
  4. NIFEDIPINE [Concomitant]
  5. FLUVASTATIN (FLUVASTATIN) [Concomitant]

REACTIONS (3)
  - GROIN PAIN [None]
  - INGUINAL HERNIA [None]
  - PROSTATIC OPERATION [None]
